FAERS Safety Report 8616182-1 (Version None)
Quarter: 2012Q3

REPORT INFORMATION
  Report Type: 
  Country: None (occurrence: None)
  Receive Date: 20120823
  Receipt Date: 20120813
  Transmission Date: 20120928
  Serious: Yes (Hospitalization)
  Sender: FDA-Public Use
  Company Number: HR-BRISTOL-MYERS SQUIBB COMPANY-16851024

PATIENT
  Age: 70 Year
  Sex: Male

DRUGS (3)
  1. WARFARIN SODIUM [Suspect]
     Indication: ATRIAL FIBRILLATION
     Dosage: ALSO TOOK 4.5 MG
     Dates: start: 20060101
  2. NEBIVOLOL [Concomitant]
     Indication: ATRIAL FIBRILLATION
     Dates: start: 20060101
  3. CLOXACILLIN SODIUM [Interacting]
     Dosage: ALSO TOOK ORALLY
     Route: 042

REACTIONS (2)
  - DRUG INTERACTION [None]
  - COAGULATION TIME PROLONGED [None]
